FAERS Safety Report 16711095 (Version 1)
Quarter: 2019Q4

REPORT INFORMATION
  Report Type: Spontaneous
  Country: US (occurrence: US)
  Receive Date: 20190816
  Receipt Date: 20190816
  Transmission Date: 20200122
  Serious: Yes (Life-Threatening, Hospitalization)
  Sender: FDA-Public Use
  Company Number: None

PATIENT
  Age: 40 Year
  Sex: Female
  Weight: 127 kg

DRUGS (1)
  1. BLISOVI FE 1/20 [Suspect]
     Active Substance: ETHINYL ESTRADIOL\NORETHINDRONE ACETATE
     Indication: POLYCYSTIC OVARIES
     Route: 048

REACTIONS (4)
  - Cerebral venous sinus thrombosis [None]
  - Transverse sinus thrombosis [None]
  - Cerebral haemorrhage [None]
  - Jugular vein thrombosis [None]

NARRATIVE: CASE EVENT DATE: 20190814
